FAERS Safety Report 5695515-2 (Version None)
Quarter: 2008Q2

REPORT INFORMATION
  Report Type: 
  Country: None (occurrence: None)
  Receive Date: 20080407
  Receipt Date: 20080331
  Transmission Date: 20081010
  Serious: Yes (Hospitalization)
  Sender: FDA-Public Use
  Company Number: US-BAYER-200818406NA

PATIENT
  Age: 20 Year
  Sex: Female
  Weight: 48 kg

DRUGS (3)
  1. YASMIN [Suspect]
     Indication: CONTRACEPTION
     Route: 048
     Dates: start: 20030101
  2. SEROQUEL [Concomitant]
     Indication: INSOMNIA
     Route: 048
  3. ALBUTEROL [Concomitant]
     Indication: ASTHMA
     Route: 055

REACTIONS (5)
  - ABDOMINAL PAIN [None]
  - GALLBLADDER DISORDER [None]
  - ORAL INTAKE REDUCED [None]
  - URINARY TRACT INFECTION [None]
  - VOMITING [None]
